FAERS Safety Report 22228322 (Version 1)
Quarter: 2023Q2

REPORT INFORMATION
  Report Type: Spontaneous
  Country: US (occurrence: None)
  Receive Date: 20230418
  Receipt Date: 20230418
  Transmission Date: 20230721
  Serious: Yes (Disabling)
  Sender: FDA-Public Use
  Company Number: None

PATIENT
  Age: 51 Year
  Sex: Female
  Weight: 67.5 kg

DRUGS (5)
  1. LEVOFLOXACIN [Suspect]
     Active Substance: LEVOFLOXACIN
     Indication: Sinusitis
     Dosage: 1 TABLET DAILY ORAL?
     Route: 048
     Dates: start: 20230310, end: 20230317
  2. LEVOTHYROXINE [Concomitant]
     Active Substance: LEVOTHYROXINE
  3. SYMBICORT [Concomitant]
     Active Substance: BUDESONIDE\FORMOTEROL FUMARATE DIHYDRATE
  4. VITAMINS [Concomitant]
     Active Substance: VITAMINS
  5. HERBALS\TURMERIC [Concomitant]
     Active Substance: HERBALS\TURMERIC

REACTIONS (17)
  - Rheumatoid arthritis [None]
  - Disability [None]
  - Mental impairment [None]
  - Drug ineffective [None]
  - Joint swelling [None]
  - Joint stiffness [None]
  - Tendon discomfort [None]
  - Muscular weakness [None]
  - Musculoskeletal stiffness [None]
  - Back pain [None]
  - Musculoskeletal stiffness [None]
  - Neck pain [None]
  - Peripheral swelling [None]
  - Tinnitus [None]
  - Skin discolouration [None]
  - Visual impairment [None]
  - Dysstasia [None]

NARRATIVE: CASE EVENT DATE: 20230315
